FAERS Safety Report 25395858 (Version 1)
Quarter: 2025Q2

REPORT INFORMATION
  Report Type: Spontaneous
  Country: US (occurrence: None)
  Receive Date: 20250603
  Receipt Date: 20250603
  Transmission Date: 20250716
  Serious: Yes (unspecified)
  Sender: FDA-CTU
  Company Number: None

PATIENT
  Age: 42 Year
  Sex: Female
  Weight: 62 kg

DRUGS (1)
  1. CLOZAPINE [Suspect]
     Active Substance: CLOZAPINE
     Indication: Schizoaffective disorder
     Dosage: FREQUENCY : DAILY;?
     Route: 048
     Dates: start: 20250424, end: 20250519

REACTIONS (5)
  - Product prescribing error [None]
  - Incorrect dose administered [None]
  - Drug level above therapeutic [None]
  - Delirium [None]
  - Medication error in transfer of care [None]

NARRATIVE: CASE EVENT DATE: 20250424
